FAERS Safety Report 10020812 (Version 2)
Quarter: 2014Q1

REPORT INFORMATION
  Report Type: Spontaneous
  Country: US (occurrence: US)
  Receive Date: 20140319
  Receipt Date: 20140319
  Transmission Date: 20141002
  Serious: Yes (Hospitalization)
  Sender: FDA-Public Use
  Company Number: US-ROCHE-1357962

PATIENT
  Sex: Male
  Weight: 83.99 kg

DRUGS (1)
  1. GAZYVA [Suspect]
     Indication: CHRONIC LYMPHOCYTIC LEUKAEMIA
     Dosage: D1 2, 8, 15
     Route: 042
     Dates: start: 20140227

REACTIONS (2)
  - Hypotension [Unknown]
  - Hypersensitivity [Unknown]
